FAERS Safety Report 6623454-9 (Version None)
Quarter: 2010Q1

REPORT INFORMATION
  Report Type: 
  Country: None (occurrence: None)
  Receive Date: 20100305
  Receipt Date: 20100219
  Transmission Date: 20100710
  Serious: Yes (Hospitalization)
  Sender: FDA-Public Use
  Company Number: JP-JNJFOC-20091106667

PATIENT
  Age: 66 Year
  Sex: Male
  Weight: 66 kg

DRUGS (11)
  1. DECITABINE (DECITABINE) LYOPHILIZED POWDER [Suspect]
     Indication: MYELODYSPLASTIC SYNDROME
     Dosage: SEE IMAGE
     Route: 042
     Dates: start: 20090831, end: 20090904
  2. DECITABINE (DECITABINE) LYOPHILIZED POWDER [Suspect]
     Indication: MYELODYSPLASTIC SYNDROME
     Dosage: SEE IMAGE
     Route: 042
     Dates: start: 20090930, end: 20091004
  3. DECITABINE (DECITABINE) LYOPHILIZED POWDER [Suspect]
     Indication: MYELODYSPLASTIC SYNDROME
     Dosage: SEE IMAGE
     Route: 042
     Dates: start: 20091028, end: 20091102
  4. DECITABINE (DECITABINE) LYOPHILIZED POWDER [Suspect]
     Indication: MYELODYSPLASTIC SYNDROME
     Dosage: SEE IMAGE
     Route: 042
     Dates: start: 20091203, end: 20091207
  5. DECITABINE (DECITABINE) LYOPHILIZED POWDER [Suspect]
     Indication: MYELODYSPLASTIC SYNDROME
     Dosage: SEE IMAGE
     Route: 042
     Dates: start: 20100114, end: 20100118
  6. THYRADIN S (LEVOTHYROXINE SODIUM) UNSPECIFIED [Concomitant]
  7. DIOVAN (VALSARTAN) UNSPECIFIED [Concomitant]
  8. GLUFAST (MITIGLINIDE) UNSPECIFIED [Concomitant]
  9. MAGNESIUM OXIDE (MAGNESIUM OXIDE) LIQUID [Concomitant]
  10. PURSENNID (PURSENNID /01627401/) UNSPECIFIED [Concomitant]
  11. MYSLEE (ZOLPIDEM TARTRATE) UNSPECIFIED [Concomitant]

REACTIONS (7)
  - BONE MARROW FAILURE [None]
  - DIARRHOEA [None]
  - ENTEROCOLITIS VIRAL [None]
  - FUNGAL INFECTION [None]
  - NAUSEA [None]
  - ORGANISING PNEUMONIA [None]
  - PNEUMONIA [None]
